FAERS Safety Report 7692364-0 (Version None)
Quarter: 2011Q3

REPORT INFORMATION
  Report Type: 
  Country: None (occurrence: None)
  Receive Date: 20110818
  Receipt Date: 20110803
  Transmission Date: 20111222
  Serious: Yes (Other)
  Sender: FDA-Public Use
  Company Number: US-BAYER-2011-069535

PATIENT
  Sex: Female

DRUGS (1)
  1. PHILLIPS' MILK OF MAGNESIA LIQUID ORIGINAL [Suspect]
     Indication: CONSTIPATION
     Dosage: 3 TABLESPOONS, ONCE
     Route: 048
     Dates: start: 20110802, end: 20110802

REACTIONS (2)
  - DEHYDRATION [None]
  - WEIGHT DECREASED [None]
